FAERS Safety Report 10174331 (Version 1)
Quarter: 2014Q2

REPORT INFORMATION
  Report Type: Spontaneous
  Country: FR (occurrence: FR)
  Receive Date: 20140515
  Receipt Date: 20140515
  Transmission Date: 20141212
  Serious: Yes (Hospitalization)
  Sender: FDA-Public Use
  Company Number: FR-ASTRAZENECA-2014SE31829

PATIENT
  Age: 661 Month
  Sex: Female

DRUGS (7)
  1. FASLODEX [Suspect]
     Route: 030
     Dates: start: 201202
  2. FASLODEX [Suspect]
     Route: 030
     Dates: start: 201202
  3. XGEVA [Suspect]
     Route: 058
     Dates: start: 20131226, end: 20140326
  4. FENOFIBRATE [Concomitant]
     Route: 048
  5. GLUCOPHAGE [Concomitant]
     Route: 048
  6. LEVOTHYROX [Concomitant]
     Route: 048
  7. OMEPRAZOLE [Concomitant]
     Route: 048

REACTIONS (2)
  - Posterior reversible encephalopathy syndrome [Not Recovered/Not Resolved]
  - Lung disorder [Unknown]
